FAERS Safety Report 24539690 (Version 1)
Quarter: 2024Q4

REPORT INFORMATION
  Report Type: Spontaneous
  Country: US (occurrence: None)
  Receive Date: 20241022
  Receipt Date: 20241022
  Transmission Date: 20250115
  Serious: No
  Sender: Public
  Company Number: None

PATIENT
  Age: 81 Year
  Sex: Female
  Weight: 91 kg

DRUGS (1)
  1. SEMGLEE (INSULIN GLARGINE) [Suspect]
     Active Substance: INSULIN GLARGINE
     Indication: Diabetes mellitus

REACTIONS (3)
  - Influenza like illness [None]
  - Erythema [None]
  - Therapy change [None]

NARRATIVE: CASE EVENT DATE: 20240301
